FAERS Safety Report 5642952-8 (Version None)
Quarter: 2008Q1

REPORT INFORMATION
  Report Type: 
  Country: None (occurrence: None)
  Receive Date: 20080227
  Receipt Date: 20080227
  Transmission Date: 20080703
  Serious: Yes (Life-Threatening, Hospitalization)
  Sender: FDA-Public Use
  Company Number: None

PATIENT
  Age: 45 Year
  Sex: Female
  Weight: 65.7716 kg

DRUGS (4)
  1. CHANTIX [Suspect]
     Indication: SMOKING CESSATION THERAPY
     Dosage: 1MG AM AND PM PO
     Route: 048
     Dates: start: 20080115, end: 20080202
  2. CYMBALTA [Concomitant]
  3. SUBOXONE [Concomitant]
  4. ESTROGEN - TRI-EST/TEST [Concomitant]

REACTIONS (10)
  - ABNORMAL BEHAVIOUR [None]
  - AGGRESSION [None]
  - ANOREXIA [None]
  - CONVERSION DISORDER [None]
  - DEPRESSION [None]
  - INSOMNIA [None]
  - PANIC REACTION [None]
  - PARTNER STRESS [None]
  - ROAD TRAFFIC ACCIDENT [None]
  - SCREAMING [None]
